FAERS Safety Report 24256066 (Version 3)
Quarter: 2024Q3

REPORT INFORMATION
  Report Type: Spontaneous
  Country: DE (occurrence: DE)
  Receive Date: 20240827
  Receipt Date: 20240906
  Transmission Date: 20241017
  Serious: Yes (Other)
  Sender: BRISTOL MYERS SQUIBB
  Company Number: None

PATIENT
  Age: 87 Year
  Sex: Male

DRUGS (5)
  1. ELIQUIS [Suspect]
     Active Substance: APIXABAN
     Indication: Product used for unknown indication
     Dosage: 5 MG IN THE MORNING AND EVENING
     Dates: start: 20220304
  2. ELIQUIS [Suspect]
     Active Substance: APIXABAN
     Dates: start: 20231210
  3. ELIQUIS [Suspect]
     Active Substance: APIXABAN
     Dosage: 2.5 MG MORNING AND EVENING
     Dates: start: 20240220
  4. CLOPIDOGREL BISULFATE [Concomitant]
     Active Substance: CLOPIDOGREL BISULFATE
     Indication: Cerebrovascular accident
     Dosage: 75 MG IN THE MORNING
     Dates: start: 20220101
  5. INFLUENZA VIRUS VACCINE [Concomitant]
     Active Substance: INFLUENZA VIRUS VACCINE
     Indication: Product used for unknown indication
     Dates: start: 20231004

REACTIONS (27)
  - Impaired healing [Unknown]
  - Peripheral coldness [Not Recovered/Not Resolved]
  - Dizziness [Unknown]
  - Nasopharyngitis [Unknown]
  - Exercise tolerance decreased [Not Recovered/Not Resolved]
  - Pneumonia [Unknown]
  - Overdose [Unknown]
  - Condition aggravated [Unknown]
  - Seasonal allergy [Unknown]
  - Feeling cold [Not Recovered/Not Resolved]
  - Hypotonia [Not Recovered/Not Resolved]
  - Somnolence [Not Recovered/Not Resolved]
  - Pancytopenia [Unknown]
  - Leukaemia [Unknown]
  - Dyspnoea [Not Recovered/Not Resolved]
  - C-reactive protein abnormal [Unknown]
  - Asthenia [Not Recovered/Not Resolved]
  - Fatigue [Not Recovered/Not Resolved]
  - Visual impairment [Not Recovered/Not Resolved]
  - Hypoacusis [Not Recovered/Not Resolved]
  - Platelet count decreased [Unknown]
  - Pulpitis dental [Unknown]
  - Anaemia [Unknown]
  - Full blood count abnormal [Unknown]
  - Freezing phenomenon [Unknown]
  - Asthma [Unknown]
  - Myalgia [Unknown]

NARRATIVE: CASE EVENT DATE: 20230101
